FAERS Safety Report 14990837 (Version 1)
Quarter: 2018Q2

REPORT INFORMATION
  Report Type: Spontaneous
  Country: US (occurrence: US)
  Receive Date: 20180608
  Receipt Date: 20180608
  Transmission Date: 20180711
  Serious: Yes (Death)
  Sender: FDA-Public Use
  Company Number: US-BRISTOL-MYERS SQUIBB COMPANY-BMS-2018-053250

PATIENT
  Age: 86 Year
  Sex: Male

DRUGS (1)
  1. OPDIVO [Suspect]
     Active Substance: NIVOLUMAB
     Indication: GLOTTIS CARCINOMA
     Dosage: 480 MG, QMO
     Route: 042

REACTIONS (1)
  - Accident [Fatal]

NARRATIVE: CASE EVENT DATE: 20180405
